FAERS Safety Report 7691031-7 (Version None)
Quarter: 2011Q3

REPORT INFORMATION
  Report Type: 
  Country: None (occurrence: None)
  Receive Date: 20110817
  Receipt Date: 20110817
  Transmission Date: 20111222
  Serious: Yes (Life-Threatening)
  Sender: FDA-Public Use
  Company Number: None

PATIENT
  Age: 60 Year
  Sex: Male
  Weight: 57.1 kg

DRUGS (1)
  1. HEPARIN SODIUM 1,000 UNITS IN DEXTROSE 5% [Suspect]
     Indication: DEEP VEIN THROMBOSIS
     Dosage: EVERY DAY IV
     Route: 042
     Dates: start: 20110501, end: 20110502

REACTIONS (16)
  - INTERNATIONAL NORMALISED RATIO INCREASED [None]
  - ACUTE HEPATIC FAILURE [None]
  - MULTI-ORGAN FAILURE [None]
  - POLYNEUROPATHY [None]
  - BLOOD CREATINE PHOSPHOKINASE INCREASED [None]
  - RENAL FAILURE ACUTE [None]
  - RETROPERITONEAL HAEMATOMA [None]
  - STAPHYLOCOCCUS TEST POSITIVE [None]
  - DISSEMINATED INTRAVASCULAR COAGULATION [None]
  - UNRESPONSIVE TO STIMULI [None]
  - LEUKOCYTOSIS [None]
  - SEPTIC SHOCK [None]
  - ANAEMIA [None]
  - RESPIRATORY FAILURE [None]
  - ENCEPHALOPATHY [None]
  - THROMBOCYTOPENIA [None]
